FAERS Safety Report 11945429 (Version 5)
Quarter: 2016Q2

REPORT INFORMATION
  Report Type: Spontaneous
  Country: ES (occurrence: ES)
  Receive Date: 20160125
  Receipt Date: 20160531
  Transmission Date: 20160815
  Serious: Yes (Other)
  Sender: FDA-Public Use
  Company Number: ES-PFIZER INC-2016034366

PATIENT
  Age: 68 Year
  Sex: Female

DRUGS (2)
  1. PRISTIQ EXTENDED-RELEASE [Suspect]
     Active Substance: DESVENLAFAXINE SUCCINATE
     Dosage: 100 (NO UNIT PROVIDED)
     Dates: start: 20160115, end: 20160120
  2. RIVOTRIL [Concomitant]
     Active Substance: CLONAZEPAM
     Dosage: 1.5 MG, DAILY
     Dates: start: 20150302, end: 20160120

REACTIONS (3)
  - Liver disorder [Unknown]
  - Faeces discoloured [Unknown]
  - Chromaturia [Unknown]

NARRATIVE: CASE EVENT DATE: 20160118
